FAERS Safety Report 8230975-4 (Version None)
Quarter: 2012Q1

REPORT INFORMATION
  Report Type: 
  Country: None (occurrence: None)
  Receive Date: 20120322
  Receipt Date: 20120309
  Transmission Date: 20120608
  Serious: Yes (Death)
  Sender: FDA-Public Use
  Company Number: UTC-016496

PATIENT
  Age: 79 Year
  Sex: Female
  Weight: 70.9 kg

DRUGS (2)
  1. DIURETICS (DIURETICS) [Concomitant]
  2. TYVASO [Suspect]
     Indication: COR PULMONALE
     Dosage: 72 MCG, INHALATION
     Route: 055
     Dates: start: 20091229

REACTIONS (1)
  - DEATH [None]
